FAERS Safety Report 21854498 (Version 2)
Quarter: 2023Q1

REPORT INFORMATION
  Report Type: Other
  Country: None (occurrence: US)
  Receive Date: 20230112
  Receipt Date: 20230126
  Transmission Date: 20230418
  Serious: Yes (Hospitalization)
  Sender: FDA-Public Use
  Company Number: US-Mission Pharmacal Company-2136653

PATIENT
  Age: 14 Year
  Sex: Female

DRUGS (4)
  1. POTASSIUM CITRATE [Suspect]
     Active Substance: POTASSIUM CITRATE
     Indication: Cystinuria
     Route: 048
  2. THIOLA EC [Concomitant]
     Active Substance: TIOPRONIN
     Route: 048
     Dates: start: 20220701
  3. AMOXICILLIN [Concomitant]
     Active Substance: AMOXICILLIN
  4. SULFAMETHOXAZOLE AND TRIMETHOPRIM [Concomitant]
     Active Substance: SULFAMETHOXAZOLE\TRIMETHOPRIM

REACTIONS (1)
  - Drug ineffective [Unknown]
